FAERS Safety Report 14934667 (Version 4)
Quarter: 2018Q4

REPORT INFORMATION
  Report Type: Report from Study
  Country: CO (occurrence: CO)
  Receive Date: 20180524
  Receipt Date: 20181225
  Transmission Date: 20190204
  Serious: Yes (Hospitalization, Other)
  Sender: FDA-Public Use
  Company Number: PHHY2018CO001190

PATIENT
  Sex: Female
  Weight: 58 kg

DRUGS (6)
  1. OMEPRAZOLE. [Concomitant]
     Active Substance: OMEPRAZOLE
     Indication: GASTRITIS PROPHYLAXIS
     Dosage: UNK UNK, QD
     Route: 065
  2. SPIRONOLACTONE. [Concomitant]
     Active Substance: SPIRONOLACTONE
     Indication: PRODUCT USED FOR UNKNOWN INDICATION
     Route: 065
  3. ACETAMINOPHEN. [Concomitant]
     Active Substance: ACETAMINOPHEN
     Indication: PRODUCT USED FOR UNKNOWN INDICATION
     Route: 065
  4. ENTRESTO [Suspect]
     Active Substance: SACUBITRIL\VALSARTAN
     Indication: CARDIAC FAILURE
     Dosage: 100 MG, Q12H
     Route: 048
     Dates: start: 20180409
  5. CARVEDILOL. [Suspect]
     Active Substance: CARVEDILOL
     Indication: PRODUCT USED FOR UNKNOWN INDICATION
     Dosage: UNK, BID
     Route: 065
  6. FUROSEMIDE. [Concomitant]
     Active Substance: FUROSEMIDE
     Indication: PRODUCT USED FOR UNKNOWN INDICATION
     Route: 065

REACTIONS (18)
  - Wound [Unknown]
  - Weight increased [Unknown]
  - Peripheral swelling [Recovered/Resolved]
  - Oesophageal disorder [Unknown]
  - Dysphagia [Unknown]
  - Secretion discharge [Unknown]
  - Insomnia [Unknown]
  - Oedema peripheral [Unknown]
  - Gait inability [Unknown]
  - Dyspnoea [Unknown]
  - Kidney infection [Recovering/Resolving]
  - Wound secretion [Unknown]
  - Abdominal pain [Unknown]
  - Gastritis [Recovered/Resolved]
  - Pain [Unknown]
  - Fluid retention [Unknown]
  - Abdominal distension [Unknown]
  - Asphyxia [Unknown]
